FAERS Safety Report 6427363-X (Version None)
Quarter: 2009Q4

REPORT INFORMATION
  Report Type: 
  Country: None (occurrence: None)
  Receive Date: 20091030
  Receipt Date: 20091022
  Transmission Date: 20100525
  Serious: Yes (Hospitalization)
  Sender: FDA-Public Use
  Company Number: 2009AL006780

PATIENT
  Age: 75 Year
  Sex: Female
  Weight: 83.2 kg

DRUGS (16)
  1. LOVASTATIN [Suspect]
     Indication: HYPERLIPIDAEMIA
     Dosage: 40 MG;QD
  2. SITAGLIPTIN [Concomitant]
  3. DILTIAZEM [Concomitant]
  4. GLIMEPIRIDE [Concomitant]
  5. LEVOTHYROXINE SODIUM [Concomitant]
  6. HYDROCHLOROTHIAZIDE [Concomitant]
  7. METOCLOPRAMIDE [Concomitant]
  8. ALENDRONATE [Concomitant]
  9. ESOMEPRAZOLE MAGNESIUM [Concomitant]
  10. TIOTROPIUM [Concomitant]
  11. MULTI-VITAMINS [Concomitant]
  12. HYDROMORPHONE [Concomitant]
  13. METHOCARBAMOL [Concomitant]
  14. PROPOXYPHENE NAPSYLATE W/ ACETAMINOPHEN [Concomitant]
  15. ROSIGLITAZONE [Concomitant]
  16. PIOGLITAZONE [Concomitant]

REACTIONS (6)
  - BACK PAIN [None]
  - BLOOD PRESSURE INCREASED [None]
  - DECREASED ACTIVITY [None]
  - FALL [None]
  - RESPIRATORY RATE INCREASED [None]
  - RHABDOMYOLYSIS [None]
